FAERS Safety Report 14121636 (Version 1)
Quarter: 2017Q4

REPORT INFORMATION
  Report Type: Spontaneous
  Country: US (occurrence: US)
  Receive Date: 20171024
  Receipt Date: 20171024
  Transmission Date: 20180321
  Serious: Yes (Hospitalization)
  Sender: FDA-Public Use
  Company Number: US-BAXTER-2017BAX036105

PATIENT
  Age: 24 Year
  Sex: Female

DRUGS (1)
  1. TISSEEL [Suspect]
     Active Substance: FIBRINOGEN HUMAN\THROMBIN HUMAN
     Indication: HAEMOSTASIS
     Route: 065
     Dates: start: 20171002, end: 20171002

REACTIONS (1)
  - Infection [Unknown]

NARRATIVE: CASE EVENT DATE: 201710
